FAERS Safety Report 22872183 (Version 4)
Quarter: 2024Q3

REPORT INFORMATION
  Report Type: Spontaneous
  Country: CA (occurrence: CA)
  Receive Date: 20230828
  Receipt Date: 20240812
  Transmission Date: 20241017
  Serious: Yes (Hospitalization, Other)
  Sender: BAXTER
  Company Number: CA-BAXTER-2023BAX029096

PATIENT
  Age: 62 Year
  Sex: Female

DRUGS (13)
  1. CYCLOPHOSPHAMIDE [Suspect]
     Active Substance: CYCLOPHOSPHAMIDE
     Indication: Breast cancer
     Dosage: UNK, CYCLICAL, DOSAGE FORM: NOT SPECIFIED
     Route: 065
  2. CYCLOPHOSPHAMIDE [Suspect]
     Active Substance: CYCLOPHOSPHAMIDE
     Dosage: UNK, DOSAGE FORM: NOT SPECIFIED
     Route: 065
  3. CYCLOPHOSPHAMIDE [Suspect]
     Active Substance: CYCLOPHOSPHAMIDE
     Dosage: UNK, 1 EVERY 2 WEEKS, DOSAGE FORM: NOT SPECIFIED
     Route: 065
  4. DOXORUBICIN [Suspect]
     Active Substance: DOXORUBICIN
     Indication: Breast cancer
     Dosage: UNK, CYCLICAL, DOSAGE FORM: SOLUTION INTRAVENOUS
     Route: 065
  5. DOXORUBICIN [Suspect]
     Active Substance: DOXORUBICIN
     Dosage: UNK, DOSAGE FORM: NOT SPECIFIED
     Route: 065
  6. DOXORUBICIN [Suspect]
     Active Substance: DOXORUBICIN
     Dosage: UNK, INJECTION BP, DOSAGE FORM: SOLUTION INTRAVENOUS
     Route: 065
  7. DOXORUBICIN [Suspect]
     Active Substance: DOXORUBICIN
     Dosage: UNK, 1 EVERY 2 WEEKS, DOSAGE FORM: NOT SPECIFIED
     Route: 065
  8. PACLITAXEL [Suspect]
     Active Substance: PACLITAXEL
     Indication: Breast cancer
     Dosage: UNK, CYCLICAL, DOSAGE FORM: LIQUID INTRAVENOUS
     Route: 065
  9. PACLITAXEL [Suspect]
     Active Substance: PACLITAXEL
     Dosage: UNK, 1 EVERY 1 WEEK, DOSAGE FORM: LIQUID INTRAVENOUS
     Route: 065
  10. PEGFILGRASTIM [Suspect]
     Active Substance: PEGFILGRASTIM
     Indication: Prophylaxis
     Dosage: UNK, DOSAGE FORM: SOLUTION SUBCUTANEOUS, SINGLE-USE PRE-FILLED AUTOINJECTOR
     Route: 065
  11. PEGFILGRASTIM [Concomitant]
     Active Substance: PEGFILGRASTIM
     Indication: Chemotherapy side effect prophylaxis
     Dosage: UNK
     Route: 065
  12. PEGFILGRASTIM [Concomitant]
     Active Substance: PEGFILGRASTIM
     Indication: Febrile neutropenia
     Dosage: UNK, DOSAGE FORM: INJECTION
     Route: 065
  13. PEGFILGRASTIM [Concomitant]
     Active Substance: PEGFILGRASTIM
     Indication: Prophylaxis

REACTIONS (2)
  - Drug ineffective [Recovered/Resolved]
  - Febrile neutropenia [Recovered/Resolved]
